FAERS Safety Report 8155432-5 (Version None)
Quarter: 2012Q1

REPORT INFORMATION
  Report Type: 
  Country: None (occurrence: None)
  Receive Date: 20120206
  Receipt Date: 20120130
  Transmission Date: 20120608
  Serious: Yes (Other)
  Sender: FDA-Public Use
  Company Number: 2012030963

PATIENT
  Sex: Female

DRUGS (2)
  1. PRIVIGEN [Suspect]
  2. BLOOD PRODUCT (BLOOD TRANSFUSION, AUXILIARY PRODUCTS) [Suspect]

REACTIONS (3)
  - HEPATITIS B SURFACE ANTIBODY POSITIVE [None]
  - TRANSMISSION OF AN INFECTIOUS AGENT VIA A MEDICINAL PRODUCT [None]
  - HEPATITIS B ANTIBODY POSITIVE [None]
